FAERS Safety Report 21694687 (Version 4)
Quarter: 2023Q1

REPORT INFORMATION
  Report Type: Report from Study
  Country: AT (occurrence: AT)
  Receive Date: 20221207
  Receipt Date: 20230112
  Transmission Date: 20230417
  Serious: Yes (Hospitalization, Other)
  Sender: FDA-Public Use
  Company Number: AT-ROCHE-3017431

PATIENT
  Age: 48 Year
  Sex: Female
  Weight: 58 kg

DRUGS (40)
  1. ENHERTU [Suspect]
     Active Substance: FAM-TRASTUZUMAB DERUXTECAN-NXKI
     Indication: HER2 positive breast cancer
     Dosage: 5.4 MG/KG, ONCE EVERY 3 WK
     Route: 065
     Dates: start: 20220110
  2. PERTUZUMAB [Suspect]
     Active Substance: PERTUZUMAB
     Indication: HER2 positive breast cancer
     Dosage: 420 MG, ONCE EVERY 3 WK
     Route: 065
     Dates: start: 20190724
  3. PERTUZUMAB [Suspect]
     Active Substance: PERTUZUMAB
     Dosage: 420 MG, ONCE EVERY 3 WK
     Route: 065
     Dates: start: 20190912
  4. PACLITAXEL [Suspect]
     Active Substance: PACLITAXEL
     Indication: HER2 positive breast cancer
     Dosage: 260 MG/M2, ONCE EVERY 3 WK
     Route: 065
     Dates: start: 20190724
  5. LAPATINIB [Suspect]
     Active Substance: LAPATINIB
     Indication: HER2 positive breast cancer
     Dosage: 250 MG
     Route: 065
     Dates: start: 20200923
  6. TRASTUZUMAB [Suspect]
     Active Substance: TRASTUZUMAB
     Indication: HER2 positive breast cancer
     Dosage: 6 MG/KG, ONCE EVERY 3 WK
     Route: 065
     Dates: start: 20190724
  7. CAPECITABINE [Suspect]
     Active Substance: CAPECITABINE
     Indication: HER2 positive breast cancer
     Dosage: 500 MG
     Route: 065
     Dates: start: 20200923, end: 20201220
  8. CAPECITABINE [Suspect]
     Active Substance: CAPECITABINE
     Dosage: 500 MG
     Route: 065
     Dates: start: 20210109
  9. ADO-TRASTUZUMAB EMTANSINE [Suspect]
     Active Substance: ADO-TRASTUZUMAB EMTANSINE
     Indication: HER2 positive breast cancer
     Dosage: 3.6 MG/KG, ONCE EVERY 3 WK
     Route: 065
     Dates: start: 20191014, end: 20200518
  10. ADO-TRASTUZUMAB EMTANSINE [Suspect]
     Active Substance: ADO-TRASTUZUMAB EMTANSINE
     Dosage: 2.88 MG/KG, ONCE EVERY 3 WK
     Route: 065
     Dates: start: 20200703
  11. LOVENOX [Concomitant]
     Active Substance: ENOXAPARIN SODIUM
     Indication: Product used for unknown indication
     Dosage: UNK
     Route: 065
  12. OLANZAPINE [Concomitant]
     Active Substance: OLANZAPINE
     Indication: Product used for unknown indication
     Dosage: UNK
     Route: 065
  13. EUTHYROX [Concomitant]
     Active Substance: LEVOTHYROXINE SODIUM
     Indication: Product used for unknown indication
     Dosage: UNK
     Route: 065
  14. ZOFRAN [Concomitant]
     Active Substance: ONDANSETRON HYDROCHLORIDE
     Indication: Product used for unknown indication
     Dosage: UNK (ONGOING CHECKED)
     Route: 065
     Dates: start: 20190701
  15. ZOFRAN [Concomitant]
     Active Substance: ONDANSETRON HYDROCHLORIDE
     Dosage: UNK (ONGOING CHECKED)
     Route: 065
     Dates: start: 20220110
  16. SUCRALAN [Concomitant]
     Indication: Product used for unknown indication
     Dosage: UNK (ONGOING CHECKED)
     Route: 065
     Dates: start: 20190701
  17. DEXAMETHASONE [Concomitant]
     Active Substance: DEXAMETHASONE
     Indication: Product used for unknown indication
     Dosage: UNK (ONGOING CHECKED)
     Route: 065
     Dates: start: 20220110
  18. DEXAMETHASONE [Concomitant]
     Active Substance: DEXAMETHASONE
     Dosage: UNK (ONGOING CHECKED)
     Route: 065
     Dates: start: 20220622
  19. CEOLAT [Concomitant]
     Indication: Product used for unknown indication
     Dosage: UNK (ONGOING CHECKED)
     Route: 065
     Dates: start: 20190815
  20. PANTOPRAZOLE SODIUM [Concomitant]
     Active Substance: PANTOPRAZOLE SODIUM
     Indication: Product used for unknown indication
     Dosage: UNK
     Route: 065
  21. NEURONTIN [GABAPENTIN] [Concomitant]
     Indication: Product used for unknown indication
     Dosage: UNK
     Route: 065
  22. EMEND [Concomitant]
     Active Substance: APREPITANT
     Indication: Product used for unknown indication
     Dosage: UNK (ONGOING CHECKED)
     Route: 065
     Dates: start: 20220621
  23. EMEND [Concomitant]
     Active Substance: APREPITANT
     Dosage: UNK (ONGOING CHECKED)
     Route: 065
     Dates: start: 20220621
  24. LENDORM [Concomitant]
     Active Substance: BROTIZOLAM
     Indication: Insomnia
     Dosage: UNK (ONGOING CHECKED)
     Route: 065
     Dates: start: 20211229
  25. CALCIDURAN [ASCORBIC ACID;CALCIUM PHOSPHATE;CITRIC ACID;COLECALCIFEROL [Concomitant]
     Indication: Product used for unknown indication
     Dosage: UNK (ONGOING CHECKED)
     Route: 065
     Dates: start: 20190717
  26. NEULASTA [Concomitant]
     Active Substance: PEGFILGRASTIM
     Indication: Product used for unknown indication
     Dosage: UNK (ONGOING CHECKED)
     Route: 065
     Dates: start: 20220420
  27. TRAZODONE HYDROCHLORIDE [Concomitant]
     Active Substance: TRAZODONE HYDROCHLORIDE
     Indication: Product used for unknown indication
     Dosage: UNK
     Route: 065
  28. DRONABINOL [Concomitant]
     Active Substance: DRONABINOL
     Indication: Product used for unknown indication
     Dosage: UNK (ONGOING CHECKED)
     Route: 065
     Dates: start: 20210705
  29. URSODIOL [Concomitant]
     Active Substance: URSODIOL
     Indication: Gamma-glutamyltransferase increased
     Dosage: UNK (ONGOING CHECKED)
     Route: 065
     Dates: start: 20220401
  30. HYDROMORPHONE HYDROCHLORIDE [Concomitant]
     Active Substance: HYDROMORPHONE HYDROCHLORIDE
     Indication: Product used for unknown indication
     Dosage: UNK (ONGOING CHECKED)
     Route: 065
     Dates: start: 20190716
  31. HYDROMORPHONE HYDROCHLORIDE [Concomitant]
     Active Substance: HYDROMORPHONE HYDROCHLORIDE
     Dosage: UNK (ONGOING CHECKED)
     Route: 065
     Dates: start: 20220207
  32. CITALOPRAM [Concomitant]
     Active Substance: CITALOPRAM HYDROBROMIDE
     Indication: Product used for unknown indication
     Dosage: UNK (ONGOING CHECKED)
     Route: 065
     Dates: start: 20190715
  33. AMOXICILLIN\CLAVULANATE POTASSIUM [Concomitant]
     Active Substance: AMOXICILLIN\CLAVULANATE POTASSIUM
     Indication: Product used for unknown indication
     Dosage: UNK
     Route: 065
  34. AMOXICILLIN\CLAVULANATE POTASSIUM [Concomitant]
     Active Substance: AMOXICILLIN\CLAVULANATE POTASSIUM
     Dosage: UNK
     Route: 065
  35. ACETAMINOPHEN [Concomitant]
     Active Substance: ACETAMINOPHEN
     Indication: Product used for unknown indication
     Dosage: UNK
     Route: 065
  36. ACETAMINOPHEN [Concomitant]
     Active Substance: ACETAMINOPHEN
     Indication: Product used for unknown indication
     Dosage: UNK (ONGOING CHECKED)
     Route: 065
     Dates: start: 20190701
  37. LOPERAMIDE HYDROCHLORIDE [Concomitant]
     Active Substance: LOPERAMIDE HYDROCHLORIDE
     Indication: Diarrhoea
     Dosage: UNK (ONGOING CHECKED)
     Route: 065
     Dates: start: 20210215
  38. ALPRAZOLAM [Concomitant]
     Active Substance: ALPRAZOLAM
     Indication: Product used for unknown indication
     Dosage: UNK (ONGOING CHECKED)
     Route: 065
     Dates: start: 20190715
  39. POLYETHYLENE GLYCOL 4000 [Concomitant]
     Active Substance: POLYETHYLENE GLYCOL 4000
     Indication: Product used for unknown indication
     Dosage: UNK (ONGOING CHECKED)
     Route: 065
     Dates: start: 20190705
  40. VALACYCLOVIR HYDROCHLORIDE [Concomitant]
     Active Substance: VALACYCLOVIR HYDROCHLORIDE
     Indication: Product used for unknown indication
     Dosage: UNK
     Route: 065

REACTIONS (5)
  - Vascular device infection [Recovered/Resolved]
  - Intracranial pressure increased [Recovered/Resolved]
  - Iron deficiency anaemia [Recovered/Resolved]
  - Insomnia [Not Recovered/Not Resolved]
  - Gamma-glutamyltransferase increased [Not Recovered/Not Resolved]

NARRATIVE: CASE EVENT DATE: 20211227
